FAERS Safety Report 6901502-6 (Version None)
Quarter: 2010Q3

REPORT INFORMATION
  Report Type: 
  Country: None (occurrence: None)
  Receive Date: 20100803
  Receipt Date: 20080201
  Transmission Date: 20110219
  Serious: Yes (Other)
  Sender: FDA-Public Use
  Company Number: US-PFIZER INC-2008010756

PATIENT
  Sex: Female
  Weight: 54.545 kg

DRUGS (37)
  1. LYRICA [Suspect]
     Indication: FIBROMYALGIA
     Dates: start: 20071201
  2. COLACE [Concomitant]
  3. SYNTHROID [Concomitant]
  4. LASIX [Concomitant]
  5. PROTONIX [Concomitant]
  6. PREDNISOLONE [Concomitant]
  7. FERROUS SULFATE [Concomitant]
  8. FERROUS SULFATE [Concomitant]
  9. DEPAKOTE [Concomitant]
  10. DEPAKOTE [Concomitant]
  11. REMERON [Concomitant]
  12. REMERON [Concomitant]
  13. SEROQUEL [Concomitant]
  14. SEROQUEL [Concomitant]
  15. LOVASTATIN [Concomitant]
  16. LOVASTATIN [Concomitant]
  17. CLONAZEPAM [Concomitant]
  18. CLONAZEPAM [Concomitant]
  19. CELEXA [Concomitant]
  20. CELEXA [Concomitant]
  21. OXYCONTIN [Concomitant]
  22. OXYCONTIN [Concomitant]
  23. TRAZODONE [Concomitant]
  24. TRAZODONE [Concomitant]
  25. RESTORIL [Concomitant]
  26. RESTORIL [Concomitant]
  27. PERCOCET [Concomitant]
  28. PERCOCET [Concomitant]
  29. POTASSIUM CHLORIDE [Concomitant]
  30. POTASSIUM CHLORIDE [Concomitant]
  31. PRILOSEC [Concomitant]
  32. PRILOSEC [Concomitant]
  33. ALL OTHER THERAPEUTIC PRODUCTS [Concomitant]
  34. CALTRATE [Concomitant]
  35. MULTI-VITAMINS [Concomitant]
  36. CARAFATE [Concomitant]
  37. LIDODERM [Concomitant]

REACTIONS (1)
  - WEIGHT INCREASED [None]
